FAERS Safety Report 8509465-7 (Version None)
Quarter: 2012Q3

REPORT INFORMATION
  Report Type: 
  Country: None (occurrence: None)
  Receive Date: 20120713
  Receipt Date: 20090909
  Transmission Date: 20120928
  Serious: Yes (Hospitalization)
  Sender: FDA-Public Use
  Company Number: ZA-ROCHE-1087698

PATIENT
  Sex: Female

DRUGS (4)
  1. CELLCEPT [Suspect]
     Indication: RENAL TRANSPLANT
     Dates: start: 20090621
  2. VALCYTE [Suspect]
     Indication: RENAL TRANSPLANT
     Dates: start: 20090621
  3. PROGRAF [Concomitant]
  4. PREDNISONE [Concomitant]

REACTIONS (1)
  - TRANSPLANT REJECTION [None]
